FAERS Safety Report 22522777 (Version 2)
Quarter: 2023Q2

REPORT INFORMATION
  Report Type: Report from Study
  Country: US (occurrence: US)
  Receive Date: 20230605
  Receipt Date: 20230606
  Transmission Date: 20230721
  Serious: No
  Sender: FDA-Public Use
  Company Number: US-002147023-NVSC2023US126262

PATIENT
  Sex: Male

DRUGS (1)
  1. KESIMPTA [Suspect]
     Active Substance: OFATUMUMAB
     Indication: Multiple sclerosis
     Dosage: 0.04 ML, QMO
     Route: 058
     Dates: start: 20230529

REACTIONS (3)
  - Vertigo [Unknown]
  - Respiratory tract congestion [Unknown]
  - Oropharyngeal discomfort [Unknown]
